FAERS Safety Report 23404219 (Version 3)
Quarter: 2025Q2

REPORT INFORMATION
  Report Type: Spontaneous
  Country: US (occurrence: US)
  Receive Date: 20240116
  Receipt Date: 20250513
  Transmission Date: 20250717
  Serious: No
  Sender: SANOFI AVENTIS
  Company Number: US-SA-SAC20240110000738

PATIENT
  Age: 16 Year
  Sex: Male

DRUGS (2)
  1. DUPIXENT [Suspect]
     Active Substance: DUPILUMAB
     Indication: Dermatitis atopic
     Dosage: 300 MG, QOW
     Route: 058
     Dates: start: 202308, end: 20240621
  2. DUPIXENT [Suspect]
     Active Substance: DUPILUMAB
     Indication: Eczema
     Route: 058
     Dates: start: 202503

REACTIONS (8)
  - Pyrexia [Unknown]
  - Anxiety [Unknown]
  - Rebound atopic dermatitis [Unknown]
  - Anticipatory anxiety [Unknown]
  - Rebound effect [Unknown]
  - Rash [Unknown]
  - Injection site pain [Unknown]
  - Inappropriate schedule of product administration [Unknown]
